FAERS Safety Report 5146041-0 (Version None)
Quarter: 2006Q4

REPORT INFORMATION
  Report Type: 
  Country: None (occurrence: None)
  Receive Date: 20061108
  Receipt Date: 20061106
  Transmission Date: 20070319
  Serious: Yes (Other)
  Sender: FDA-Public Use
  Company Number: US-GLAXOSMITHKLINE-A0626332A

PATIENT
  Age: 75 Year
  Sex: Male

DRUGS (9)
  1. ADVAIR DISKUS 100/50 [Suspect]
     Indication: ASTHMA
     Dosage: 1PUFF TWICE PER DAY
     Route: 055
  2. FLONASE [Concomitant]
  3. SINGULAIR [Concomitant]
  4. PLAQUENIL [Concomitant]
  5. CRESTOR [Concomitant]
  6. CARDURA [Concomitant]
  7. FLOMAX [Concomitant]
  8. PROSCAR [Concomitant]
  9. BONIVA [Concomitant]

REACTIONS (3)
  - ASPIRATION [None]
  - DYSPHAGIA [None]
  - PARALYSIS [None]
